FAERS Safety Report 9050431 (Version 9)
Quarter: 2014Q1

REPORT INFORMATION
  Report Type: Spontaneous
  Country: US (occurrence: US)
  Receive Date: 20130205
  Receipt Date: 20140310
  Transmission Date: 20141002
  Serious: Yes (Other)
  Sender: FDA-Public Use
  Company Number: US-PFIZER INC-2013040523

PATIENT
  Age: 51 Year
  Sex: Female

DRUGS (32)
  1. PRISTIQ [Suspect]
     Indication: DEPRESSION
     Dosage: 100 MG, 1X/DAY
     Dates: start: 20130129
  2. LYRICA [Suspect]
     Indication: BRAIN NEOPLASM BENIGN
     Dosage: 150 MG, 2X/DAY
     Route: 048
     Dates: start: 20130129
  3. LYRICA [Suspect]
     Indication: SCOLIOSIS
  4. LYRICA [Suspect]
     Indication: SPINAL OSTEOARTHRITIS
  5. LYRICA [Suspect]
     Indication: CARPAL TUNNEL SYNDROME
  6. LYRICA [Suspect]
     Indication: NEUROPATHY PERIPHERAL
  7. LYRICA [Suspect]
     Indication: OSTEOARTHRITIS
  8. CELEBREX [Suspect]
     Indication: BRAIN NEOPLASM BENIGN
     Dosage: 200 MG, 1X/DAY
     Dates: start: 20130129
  9. CELEBREX [Suspect]
     Indication: SCOLIOSIS
  10. CELEBREX [Suspect]
     Indication: SPINAL OSTEOARTHRITIS
  11. CELEBREX [Suspect]
     Indication: CARPAL TUNNEL SYNDROME
  12. CELEBREX [Suspect]
     Indication: NEUROPATHY PERIPHERAL
  13. CELEBREX [Suspect]
     Indication: OSTEOARTHRITIS
  14. ABILIFY [Suspect]
     Indication: DEPRESSION
     Dosage: UNK
  15. SYNTHROID [Concomitant]
     Indication: THYROID DISORDER
     Dosage: UNK, DAILY
  16. OXYCODONE [Concomitant]
     Indication: PAIN
     Dosage: 15 MG, EVERY 6 HRS
  17. PROVIGIL [Concomitant]
     Indication: DEPRESSED LEVEL OF CONSCIOUSNESS
     Dosage: 200 MG, 2X/DAY
  18. KLOR-CON [Concomitant]
     Indication: ELECTROLYTE IMBALANCE
     Dosage: 10 MG, DAILY
  19. ZANAFLEX [Concomitant]
     Dosage: 8MG OR 12MG, AS NEEDED
  20. TRAZODONE [Concomitant]
     Indication: SLEEP DISORDER
     Dosage: 100 MG, DAILY
  21. DESIPRAMINE [Concomitant]
     Indication: SLEEP DISORDER
     Dosage: 50 MG, DAILY
  22. PROPRANOLOL [Concomitant]
     Indication: BLOOD PRESSURE ABNORMAL
     Dosage: 10 MG, 2X/DAY
  23. TRAMADOL [Concomitant]
     Indication: RESTLESS LEGS SYNDROME
     Dosage: 0.5 MG, 3X/DAY
  24. OXYGEN [Concomitant]
     Indication: POLYNEUROPATHY CHRONIC
     Dosage: 2 LITERS DAILY AT NIGHT
  25. CLONAZEPAM [Concomitant]
     Indication: MOVEMENT DISORDER
     Dosage: UNK, DAILY
  26. ALBUTEROL [Concomitant]
     Dosage: UNK
  27. PRAMIPEXOLE [Concomitant]
     Dosage: UNK
  28. DIAZEPAM [Concomitant]
     Dosage: UNK
  29. GLUCOSAMINE HCL [Concomitant]
     Dosage: UNK
  30. BIOTIN [Concomitant]
     Dosage: UNK
  31. VITAMIN K [Concomitant]
     Dosage: UNK
  32. VITAMIN D [Concomitant]
     Dosage: UNK

REACTIONS (18)
  - Neoplasm malignant [Unknown]
  - Staphylococcal infection [Unknown]
  - Tardive dyskinesia [Not Recovered/Not Resolved]
  - Foot deformity [Unknown]
  - Foot fracture [Unknown]
  - Pain in extremity [Unknown]
  - Brain neoplasm [Unknown]
  - Suicidal ideation [Unknown]
  - Cerebrovascular accident [Unknown]
  - Intentional self-injury [Not Recovered/Not Resolved]
  - Thyroid cancer [Unknown]
  - Exostosis [Unknown]
  - Depression [Unknown]
  - Off label use [Unknown]
  - Crying [Unknown]
  - Activities of daily living impaired [Unknown]
  - Muscle spasms [Not Recovered/Not Resolved]
  - Arthritis [Unknown]
